FAERS Safety Report 8283943-0 (Version None)
Quarter: 2012Q2

REPORT INFORMATION
  Report Type: 
  Country: None (occurrence: None)
  Receive Date: 20120413
  Receipt Date: 20120411
  Transmission Date: 20120825
  Serious: Yes (Life-Threatening, Hospitalization, Other)
  Sender: FDA-Public Use
  Company Number: CO-ABBOTT-12P-036-0925035-00

PATIENT
  Sex: Female
  Weight: 50 kg

DRUGS (7)
  1. METHOTREXATE [Concomitant]
     Indication: PSORIASIS
  2. WHARPHARINE [Concomitant]
     Indication: PRODUCT USED FOR UNKNOWN INDICATION
     Route: 065
  3. METHOTREXATE [Concomitant]
     Indication: RHEUMATOID ARTHRITIS
     Route: 048
     Dates: start: 20050101
  4. HUMIRA [Suspect]
     Indication: RHEUMATOID ARTHRITIS
     Route: 058
     Dates: start: 20050101, end: 20120309
  5. HUMIRA [Suspect]
     Indication: PSORIASIS
  6. TRAZODONE HCL [Concomitant]
     Indication: DEPRESSION
     Route: 048
  7. PREDNISOLONE [Concomitant]
     Indication: RHEUMATOID ARTHRITIS
     Route: 048

REACTIONS (7)
  - UPPER GASTROINTESTINAL HAEMORRHAGE [None]
  - HEPATIC CANCER METASTATIC [None]
  - OESOPHAGEAL POLYP [None]
  - INTESTINAL OBSTRUCTION [None]
  - HEPATIC MASS [None]
  - POSTOPERATIVE ADHESION [None]
  - WEIGHT DECREASED [None]
